FAERS Safety Report 7961437-7 (Version None)
Quarter: 2011Q4

REPORT INFORMATION
  Report Type: 
  Country: None (occurrence: None)
  Receive Date: 20111121
  Receipt Date: 20110928
  Transmission Date: 20120403
  Serious: No
  Sender: FDA-Public Use
  Company Number: 1000024273

PATIENT
  Sex: Female

DRUGS (5)
  1. VIIBRYD [Suspect]
     Indication: DEPRESSION
     Dosage: 10 MG (10 MG,1 IN 1 D),ORAL
     Route: 048
     Dates: start: 20110925
  2. VIIBRYD [Suspect]
     Indication: ANXIETY
     Dosage: 10 MG (10 MG,1 IN 1 D),ORAL
     Route: 048
     Dates: start: 20110925
  3. CHAMOMILE (CHAMOMILE) (CHAMOMILE) [Concomitant]
  4. BOLDO (PEUMUS BOLDUS) (PEUMUS BOLDUS) [Concomitant]
  5. GINGER (GINGER) (GINGER) [Concomitant]

REACTIONS (5)
  - FLATULENCE [None]
  - DIARRHOEA [None]
  - NAUSEA [None]
  - ABDOMINAL DISCOMFORT [None]
  - INSOMNIA [None]
